FAERS Safety Report 20004335 (Version 1)
Quarter: 2021Q4

REPORT INFORMATION
  Report Type: Spontaneous
  Country: US (occurrence: US)
  Receive Date: 20211028
  Receipt Date: 20211028
  Transmission Date: 20220303
  Serious: No
  Sender: FDA-Public Use
  Company Number: US-ELI_LILLY_AND_COMPANY-US202110003518

PATIENT
  Sex: Female

DRUGS (3)
  1. BASAGLAR [Suspect]
     Active Substance: INSULIN GLARGINE
     Indication: Diabetes mellitus
     Dosage: UNK UNK, UNKNOWN
     Route: 058
  2. METFORMIN [Suspect]
     Active Substance: METFORMIN HYDROCHLORIDE
     Indication: Product used for unknown indication
     Dosage: UNK UNK, UNKNOWN
     Route: 065
  3. SYNTHROID [Concomitant]
     Active Substance: LEVOTHYROXINE SODIUM
     Indication: Thyroid disorder
     Dosage: UNK

REACTIONS (18)
  - Tooth loss [Recovering/Resolving]
  - Platelet count decreased [Unknown]
  - Gingival bleeding [Unknown]
  - Coagulopathy [Unknown]
  - Dizziness [Recovered/Resolved]
  - Fall [Unknown]
  - Fall [Unknown]
  - Loose tooth [Unknown]
  - Tremor [Unknown]
  - Enzyme level increased [Unknown]
  - Epistaxis [Unknown]
  - Abdominal distension [Unknown]
  - Discomfort [Unknown]
  - Headache [Unknown]
  - Weight increased [Unknown]
  - Cataract [Not Recovered/Not Resolved]
  - Injection site pain [Unknown]
  - Injection site bruising [Unknown]

NARRATIVE: CASE EVENT DATE: 20210401
